FAERS Safety Report 4491932-7 (Version None)
Quarter: 2004Q4

REPORT INFORMATION
  Report Type: 
  Country: None (occurrence: None)
  Receive Date: 20041029
  Receipt Date: 20041029
  Transmission Date: 20050328
  Serious: No
  Sender: FDA-Public Use
  Company Number: None

PATIENT
  Age: 38 Year
  Sex: Male

DRUGS (1)
  1. DIPHENHYDRAMINE   50 MG/ ML   AMERICAN PHARMACEUTICAL [Suspect]
     Indication: NERVE BLOCK
     Dosage: OTHER
     Route: 050
     Dates: start: 20040606, end: 20040606

REACTIONS (2)
  - EXTREMITY NECROSIS [None]
  - TOE AMPUTATION [None]
